FAERS Safety Report 23659154 (Version 10)
Quarter: 2024Q3

REPORT INFORMATION
  Report Type: Spontaneous
  Country: US (occurrence: US)
  Receive Date: 20240321
  Receipt Date: 20240722
  Transmission Date: 20241017
  Serious: Yes (Other)
  Sender: BRISTOL MYERS SQUIBB
  Company Number: US-BRISTOL-MYERS SQUIBB COMPANY-2024-045561

PATIENT
  Age: 86 Year
  Sex: Male

DRUGS (5)
  1. POMALYST [Suspect]
     Active Substance: POMALIDOMIDE
     Indication: Plasma cell myeloma
     Dosage: TAKE 1 CAPSULE BY MOUTH WHOLE 2 HOURS FROM FOOD AT SAME TIME DAILY X 21 DAYS, 7 DAYS OFF. DO NOT BRE
     Route: 048
  2. POMALYST [Suspect]
     Active Substance: POMALIDOMIDE
     Dosage: TAKE 1 CAPSULE BY MOUTH WHOLE 2 HOURS FROM FOOD AT SAME TIME DAILY X 21 DAYS, 7 DAYS OFF. DO NOT BRE
     Route: 048
  3. POMALYST [Suspect]
     Active Substance: POMALIDOMIDE
     Dosage: TAKE 1 CAP WHOLE BY MOUTH AT SAME TIME DAILY FOR 21 DAYS, 7 DAYS OFF (ON EMPTY STOMACH, DONT BREAK,
     Route: 048
  4. POMALYST [Suspect]
     Active Substance: POMALIDOMIDE
     Dosage: TAKE 1 CAP WHOLE BY MOUTH AT SAME TIME DAILY FOR 21 DAYS, 7 DAYS OFF (ON EMPTY STOMACH, DONT BREAK,
     Route: 048
     Dates: start: 2024
  5. XARELTO [Concomitant]
     Active Substance: RIVAROXABAN
     Indication: Product used for unknown indication

REACTIONS (11)
  - Fatigue [Recovering/Resolving]
  - Insomnia [Not Recovered/Not Resolved]
  - Asthenia [Unknown]
  - Upper respiratory tract infection [Recovering/Resolving]
  - Memory impairment [Not Recovered/Not Resolved]
  - Feeling abnormal [Recovering/Resolving]
  - Product dose omission issue [Unknown]
  - Dizziness [Recovering/Resolving]
  - Abdominal discomfort [Recovering/Resolving]
  - Diarrhoea [Recovered/Resolved]
  - Accident [Not Recovered/Not Resolved]
